FAERS Safety Report 25925192 (Version 1)
Quarter: 2025Q4

REPORT INFORMATION
  Report Type: Spontaneous
  Country: CN (occurrence: CN)
  Receive Date: 20251015
  Receipt Date: 20251015
  Transmission Date: 20260118
  Serious: Yes (Other)
  Sender: PFIZER
  Company Number: CN-PFIZER INC-PV202500120983

PATIENT
  Age: 3 Year
  Sex: Female
  Weight: 17.1 kg

DRUGS (2)
  1. METHOTREXATE SODIUM [Suspect]
     Active Substance: METHOTREXATE SODIUM
     Indication: Acute lymphocytic leukaemia
     Dosage: 175 MG, 1X/DAY, VIA INFUSION PUMP FOR 0.5H
     Route: 041
     Dates: start: 20250916, end: 20250916
  2. METHOTREXATE SODIUM [Suspect]
     Active Substance: METHOTREXATE SODIUM
     Dosage: 1575 MG, 1X/DAY, VIA INFUSION PUMP FOR 23.5H
     Route: 041
     Dates: start: 20250916, end: 20250917

REACTIONS (1)
  - Drug level increased [Recovered/Resolved]

NARRATIVE: CASE EVENT DATE: 20250917
